FAERS Safety Report 5748339-1 (Version None)
Quarter: 2008Q2

REPORT INFORMATION
  Report Type: 
  Country: None (occurrence: None)
  Receive Date: 20080520
  Receipt Date: 20080506
  Transmission Date: 20081010
  Serious: Yes (Hospitalization)
  Sender: FDA-Public Use
  Company Number: 20080122

PATIENT
  Age: 44 Year
  Sex: Female

DRUGS (1)
  1. VENOFER [Suspect]
     Indication: DRUG USE FOR UNKNOWN INDICATION
     Dosage: 100 MG PER ONCE; INTRAVENOUS
     Route: 042
     Dates: start: 20080304, end: 20080304

REACTIONS (4)
  - CHILLS [None]
  - FALL [None]
  - HYPOTONIA [None]
  - TACHYCARDIA [None]
